FAERS Safety Report 4953779-4 (Version None)
Quarter: 2006Q1

REPORT INFORMATION
  Report Type: 
  Country: None (occurrence: None)
  Receive Date: 20060321
  Receipt Date: 20060314
  Transmission Date: 20060701
  Serious: Yes (Other)
  Sender: FDA-Public Use
  Company Number: S06-USA-01092-01

PATIENT
  Age: 75 Year
  Sex: Female

DRUGS (2)
  1. LEXAPRO [Suspect]
     Dosage: 10 MG QD PO
     Route: 048
     Dates: start: 20060228, end: 20060313
  2. MULTIPLE MEDICATIONS [Concomitant]

REACTIONS (1)
  - ANGLE CLOSURE GLAUCOMA [None]
